FAERS Safety Report 24455060 (Version 2)
Quarter: 2024Q4

REPORT INFORMATION
  Report Type: Report from Study
  Country: US (occurrence: US)
  Receive Date: 20241017
  Receipt Date: 20241018
  Transmission Date: 20250115
  Serious: No
  Sender: ROCHE
  Company Number: US-ROCHE-3488752

PATIENT
  Age: 63 Year
  Sex: Male
  Weight: 111.13 kg

DRUGS (2)
  1. RITUXAN [Suspect]
     Active Substance: RITUXIMAB
     Indication: Leukaemia
     Dosage: STRENGTH : 100 MG ON DAY 01, 08, 15, 22 AND EVERY 28 DAYS. THE DATE OF SERVICE WAS REPORTED AS 04/AU
     Route: 042
     Dates: start: 202202, end: 202308
  2. RITUXAN [Suspect]
     Active Substance: RITUXIMAB
     Indication: Chronic lymphocytic leukaemia

REACTIONS (2)
  - Hypertension [Unknown]
  - Blood cholesterol increased [Unknown]
